FAERS Safety Report 24555869 (Version 2)
Quarter: 2024Q4

REPORT INFORMATION
  Report Type: Spontaneous
  Country: US (occurrence: US)
  Receive Date: 20241028
  Receipt Date: 20241122
  Transmission Date: 20250114
  Serious: Yes (Other)
  Sender: PFIZER
  Company Number: US-PFIZER INC-PV202400138562

PATIENT
  Age: 60 Year
  Sex: Female

DRUGS (1)
  1. XELJANZ XR [Suspect]
     Active Substance: TOFACITINIB CITRATE
     Dosage: HAS BEEN ON XELJANZ FOR ALMOST 2 YEARS
     Dates: start: 2024

REACTIONS (4)
  - Gastric bypass [Unknown]
  - Post procedural complication [Unknown]
  - Therapeutic product effect decreased [Unknown]
  - Pain [Unknown]

NARRATIVE: CASE EVENT DATE: 20240101
